FAERS Safety Report 9366865 (Version 1)
Quarter: 2013Q2

REPORT INFORMATION
  Report Type: Spontaneous
  Country: GB (occurrence: None)
  Receive Date: 20130621
  Receipt Date: 20130621
  Transmission Date: 20140414
  Serious: Yes (Hospitalization)
  Sender: FDA-Public Use
  Company Number: 1752006

PATIENT
  Sex: 0

DRUGS (7)
  1. VINCRISTINE SULFATE [Suspect]
     Indication: B-CELL LYMPHOMA
     Dosage: 1 WEEK
     Route: 042
     Dates: start: 20130322
  2. RITUXIMAB [Suspect]
     Indication: B-CELL LYMPHOMA
     Dosage: 575 ML AT A CONCENTRATION OF 1.30 MG/ML (1 WEEK)
     Route: 042
     Dates: start: 20130412
  3. CYCLOPHOSPHAMIDE [Suspect]
     Indication: B-CELL LYMPHOMA
     Dosage: 1 WEEK
     Route: 042
     Dates: start: 20130322
  4. PREDNISONE [Suspect]
     Indication: B-CELL LYMPHOMA
     Dosage: 1 WEEK
     Route: 042
     Dates: start: 20130322
  5. SIMVASTATIN [Concomitant]
  6. LERCANIDIPINE [Concomitant]
  7. LANSOPRAZOLE [Concomitant]

REACTIONS (1)
  - Neutropenia [None]
